FAERS Safety Report 5003249-2 (Version None)
Quarter: 2006Q2

REPORT INFORMATION
  Report Type: 
  Country: None (occurrence: None)
  Receive Date: 20060512
  Receipt Date: 20060509
  Transmission Date: 20061013
  Serious: Yes (Life-Threatening)
  Sender: FDA-Public Use
  Company Number: 2006-04-0482

PATIENT

DRUGS (1)
  1. TEMODAR [Suspect]

REACTIONS (1)
  - ATRIAL FIBRILLATION [None]
